FAERS Safety Report 8544724 (Version 4)
Quarter: 2012Q4

REPORT INFORMATION
  Report Type: 
  Country: US (occurrence: US)
  Receive Date: 20120503
  Receipt Date: 20121213
  Transmission Date: 20130627
  Serious: Yes (Death, Hospitalization)
  Sender: FDA-Public Use
  Company Number: US-GLAXOSMITHKLINE-A0976155A

PATIENT
  Age: 84 Year
  Sex: Male
  Weight: 68.2 kg

DRUGS (7)
  1. OFATUMUMAB [Suspect]
     Indication: CHRONIC LYMPHOCYTIC LEUKAEMIA
     Dosage: 2000MG Weekly
     Route: 042
     Dates: start: 20120222, end: 20120403
  2. ALLOPURINOL [Concomitant]
     Indication: ATRIAL FIBRILLATION
     Dosage: 300MGD per day
     Route: 048
     Dates: start: 20110909
  3. CARVEDILOL [Concomitant]
     Indication: ATRIAL FIBRILLATION
     Dosage: 25MG Twice per day
     Route: 048
  4. DIGOXIN [Concomitant]
     Indication: ATRIAL FIBRILLATION
     Dosage: .125MGD per day
     Route: 048
  5. FRUSEMIDE [Concomitant]
     Indication: RENAL FAILURE
     Dosage: 40MG Twice per day
     Route: 048
     Dates: start: 20111201
  6. NIACIN [Concomitant]
     Indication: VITAMIN SUPPLEMENTATION
     Dosage: 750MG Twice per day
     Route: 048
  7. POTASSIUM [Concomitant]
     Indication: MEDICAL DIET
     Dosage: 40MG Twice per day
     Route: 048

REACTIONS (26)
  - Confusional state [Unknown]
  - Diabetes mellitus [Unknown]
  - Coronary artery disease [Unknown]
  - Hypercholesterolaemia [Unknown]
  - Hypothyroidism [Unknown]
  - Asthenia [Recovered/Resolved]
  - Skin warm [Recovered/Resolved]
  - Eating disorder [Recovered/Resolved]
  - Infection [Recovered/Resolved]
  - Flushing [Recovered/Resolved]
  - Body temperature increased [Recovered/Resolved]
  - Blood pressure decreased [Recovered/Resolved]
  - Blood sodium increased [Recovered/Resolved]
  - Blood calcium increased [Recovered/Resolved]
  - Pyrexia [Unknown]
  - Dyspnoea [Unknown]
  - Tachycardia [Unknown]
  - Pneumonia aspiration [Fatal]
  - Gastrointestinal haemorrhage [Recovered/Resolved]
  - Gastroenteritis radiation [Unknown]
  - Depressed level of consciousness [Unknown]
  - Hypotension [Unknown]
  - Hypoxia [Unknown]
  - Choking [Unknown]
  - Cellulitis [Unknown]
  - Fluid retention [Recovering/Resolving]
